FAERS Safety Report 6593999-9 (Version None)
Quarter: 2010Q1

REPORT INFORMATION
  Report Type: 
  Country: None (occurrence: None)
  Receive Date: 20100212
  Receipt Date: 20100203
  Transmission Date: 20100710
  Serious: Yes (Hospitalization)
  Sender: FDA-Public Use
  Company Number: 2009EU003309

PATIENT
  Age: 24 Year
  Sex: Female
  Weight: 60.1 kg

DRUGS (22)
  1. FK506(MR4) (TACROLIMUS) CAPSULE [Suspect]
     Indication: RENAL TRANSPLANT
     Dosage: 10 MG, UID/QD, ORAL; 9 MG, UID/QD, ORAL; 8 MG, /D, ORAL
     Route: 048
     Dates: start: 20090804, end: 20090902
  2. FK506(MR4) (TACROLIMUS) CAPSULE [Suspect]
     Indication: RENAL TRANSPLANT
     Dosage: 10 MG, UID/QD, ORAL; 9 MG, UID/QD, ORAL; 8 MG, /D, ORAL
     Route: 048
     Dates: start: 20090903, end: 20090907
  3. FK506(MR4) (TACROLIMUS) CAPSULE [Suspect]
     Indication: RENAL TRANSPLANT
     Dosage: 10 MG, UID/QD, ORAL; 9 MG, UID/QD, ORAL; 8 MG, /D, ORAL
     Route: 048
     Dates: start: 20090908, end: 20100120
  4. CELLCEPT [Suspect]
     Indication: RENAL TRANSPLANT
     Dosage: 500 MG, BID, ORAL
     Route: 048
     Dates: start: 20090804, end: 20090902
  5. PROGRAF [Suspect]
     Indication: RENAL TRANSPLANT
     Dosage: 5 MG, BID, ORAL
     Route: 048
     Dates: start: 20100120
  6. MORPHINE [Concomitant]
  7. ISONIAZID [Concomitant]
  8. PYRIDOXINE (PYRIDOXINE) [Concomitant]
  9. SULFAMETHOXAZOLE AND TRIMETHOPRIM (SULFAMETHOXAZOLE, TRIMETHOPRIM) [Concomitant]
  10. VALCYTE [Concomitant]
  11. OMEPRAZOLE [Concomitant]
  12. BASILIXIMAB (BASILIXIMAB) [Concomitant]
  13. SOLU-MEDROL [Concomitant]
  14. LASIX [Concomitant]
  15. SLOW-K [Concomitant]
  16. FUNGIZONE [Concomitant]
  17. DOXYFENE (PARACETAMOL, DEXTROPROPDXYPHENE HYDROCHLORIDE) [Concomitant]
  18. MAXOLON [Concomitant]
  19. ZINACEF [Concomitant]
  20. CEFUROXIME AXETIL [Concomitant]
  21. PHENERGAN (PROMETHAZINE) [Concomitant]
  22. ACETAMINOPHEN [Concomitant]

REACTIONS (4)
  - BLOOD ALKALINE PHOSPHATASE DECREASED [None]
  - PARATHYROID TUMOUR BENIGN [None]
  - PROTEUS INFECTION [None]
  - VOMITING [None]
